FAERS Safety Report 5782968-4 (Version None)
Quarter: 2008Q2

REPORT INFORMATION
  Report Type: 
  Country: None (occurrence: None)
  Receive Date: 20080619
  Receipt Date: 20080604
  Transmission Date: 20081010
  Serious: Yes (Hospitalization)
  Sender: FDA-Public Use
  Company Number: 8033489

PATIENT
  Sex: Female

DRUGS (2)
  1. KEPPRA [Suspect]
     Dosage: 1500 MG 2/D
     Dates: start: 20060101
  2. LAMICTAL [Concomitant]

REACTIONS (6)
  - AGGRESSION [None]
  - ANHEDONIA [None]
  - MENTAL DISORDER [None]
  - PAIN [None]
  - SELF INJURIOUS BEHAVIOUR [None]
  - WEIGHT DECREASED [None]
